FAERS Safety Report 9338093 (Version 1)
Quarter: 2013Q2

REPORT INFORMATION
  Report Type: Spontaneous
  Country: FR (occurrence: FR)
  Receive Date: 20130610
  Receipt Date: 20130610
  Transmission Date: 20140414
  Serious: Yes (Death, Hospitalization)
  Sender: FDA-Public Use
  Company Number: FR-ROCHE-1234210

PATIENT
  Age: 88 Year
  Sex: Female

DRUGS (7)
  1. ROCEPHINE [Suspect]
     Indication: CEREBROVASCULAR ACCIDENT
     Route: 051
     Dates: start: 20130318, end: 20130425
  2. AUGMENTIN [Suspect]
     Indication: CEREBROVASCULAR ACCIDENT
     Route: 048
     Dates: start: 20130425, end: 20130507
  3. FLAGYL [Suspect]
     Indication: CEREBROVASCULAR ACCIDENT
     Dosage: 500 MG
     Route: 048
     Dates: start: 20130507, end: 20130516
  4. KARDEGIC [Concomitant]
  5. CORDARONE [Concomitant]
  6. LASILIX [Concomitant]
  7. GINKGO BILOBA [Concomitant]

REACTIONS (1)
  - Convulsion [Fatal]
